FAERS Safety Report 9652280 (Version 1)
Quarter: 2013Q4

REPORT INFORMATION
  Report Type: Spontaneous
  Country: US (occurrence: None)
  Receive Date: 20131025
  Receipt Date: 20131025
  Transmission Date: 20140711
  Serious: Yes (Death)
  Sender: FDA-Public Use
  Company Number: 1964993

PATIENT
  Age: 54 Year
  Sex: 0

DRUGS (2)
  1. LEVOPHED [Suspect]
     Dates: start: 20131004
  2. DEXTROSE W/POTASSIUM CHLORIDE/SODIUM CHLORIDE) [Suspect]
     Indication: PRODUCT USED FOR UNKNOWN INDICATION
     Route: 042
     Dates: start: 20131004

REACTIONS (3)
  - Supraventricular tachycardia [None]
  - Infusion related reaction [None]
  - Hypotension [None]
